FAERS Safety Report 24802043 (Version 1)
Quarter: 2025Q1

REPORT INFORMATION
  Report Type: Report from Study
  Country: GB (occurrence: None)
  Receive Date: 20250102
  Receipt Date: 20250102
  Transmission Date: 20250409
  Serious: Yes (Hospitalization)
  Sender: Alvotech
  Company Number: GB-ALVOTECHPMS-2024-ALVOTECHPMS-002829

PATIENT
  Age: 71 Year
  Sex: Female

DRUGS (1)
  1. USTEKINUMAB [Suspect]
     Active Substance: USTEKINUMAB
     Indication: Crohn^s disease
     Dosage: 1 X 90 MG / 8 WEEK?SOLUTION FOR INJECTION PRE-FILLED SYRINGES
     Route: 058
     Dates: start: 20241112

REACTIONS (1)
  - Cerebrovascular accident [Unknown]
